FAERS Safety Report 23298094 (Version 1)
Quarter: 2023Q4

REPORT INFORMATION
  Report Type: Spontaneous
  Country: US (occurrence: US)
  Receive Date: 20231214
  Receipt Date: 20231214
  Transmission Date: 20240109
  Serious: No
  Sender: FDA-Public Use
  Company Number: US-ABBVIE-5531432

PATIENT
  Sex: Female

DRUGS (1)
  1. BOTOX COSMETIC [Suspect]
     Active Substance: ONABOTULINUMTOXINA
     Indication: Eyelid ptosis
     Dosage: TIME INTERVAL: AS NECESSARY
     Route: 065
     Dates: start: 20231201, end: 20231201

REACTIONS (1)
  - Mydriasis [Recovering/Resolving]

NARRATIVE: CASE EVENT DATE: 20231204
